FAERS Safety Report 6868473-2 (Version None)
Quarter: 2010Q3

REPORT INFORMATION
  Report Type: 
  Country: None (occurrence: None)
  Receive Date: 20100722
  Receipt Date: 20080623
  Transmission Date: 20110219
  Serious: No
  Sender: FDA-Public Use
  Company Number: US-PFIZER INC-2008046505

PATIENT
  Sex: Male
  Weight: 99.79 kg

DRUGS (9)
  1. CHANTIX [Suspect]
     Indication: SMOKING CESSATION THERAPY
     Dates: start: 20080401
  2. PREDNISONE [Concomitant]
  3. SIMVASTATIN [Concomitant]
  4. METOPROLOL SUCCINATE [Concomitant]
  5. PLAVIX [Concomitant]
  6. ACETYLSALICYLIC ACID [Concomitant]
  7. PRILOSEC [Concomitant]
  8. VALSARTAN [Concomitant]
  9. DRUG, UNSPECIFIED [Concomitant]

REACTIONS (1)
  - DRUG INEFFECTIVE [None]
